FAERS Safety Report 9925506 (Version 10)
Quarter: 2016Q1

REPORT INFORMATION
  Report Type: Spontaneous
  Country: AU (occurrence: AU)
  Receive Date: 20140226
  Receipt Date: 20160304
  Transmission Date: 20160526
  Serious: Yes (Hospitalization, Other)
  Sender: FDA-Public Use
  Company Number: AU-ALEXION PHARMACEUTICALS INC.-A201400628

PATIENT
  Age: 71 Year
  Sex: Male

DRUGS (2)
  1. SOLIRIS [Suspect]
     Active Substance: ECULIZUMAB
     Indication: PAROXYSMAL NOCTURNAL HAEMOGLOBINURIA
     Dosage: 900 MG, Q2W
     Route: 042
     Dates: start: 201105
  2. METFORMIN [Concomitant]
     Active Substance: METFORMIN HYDROCHLORIDE
     Indication: TYPE 2 DIABETES MELLITUS
     Dosage: UNK
     Route: 065
     Dates: start: 201307

REACTIONS (27)
  - Body temperature increased [Recovered/Resolved]
  - Cellulitis [Recovered/Resolved]
  - Skin discolouration [Recovered/Resolved]
  - Body temperature abnormal [Recovered/Resolved]
  - Inflammation [Recovered/Resolved]
  - Infected varicose vein [Not Recovered/Not Resolved]
  - Erythema [Unknown]
  - Pyrexia [Recovered/Resolved]
  - Nausea [Recovered/Resolved]
  - Diverticulum [Unknown]
  - Venous injury [Unknown]
  - Diverticulitis [Recovered/Resolved]
  - Feeling hot [Recovered/Resolved]
  - Abdominal pain lower [Recovered/Resolved]
  - Cellulitis [Recovered/Resolved]
  - Diverticulitis [Recovered/Resolved]
  - Swelling [Unknown]
  - Abdominal pain [Recovered/Resolved]
  - Vomiting [Recovered/Resolved]
  - Pain in extremity [Unknown]
  - Chromaturia [Not Recovered/Not Resolved]
  - Sepsis [Recovered/Resolved]
  - Infection [Unknown]
  - Swelling [Unknown]
  - Swelling [Recovered/Resolved]
  - Paraesthesia [Recovered/Resolved]
  - Fatigue [Unknown]

NARRATIVE: CASE EVENT DATE: 20140209
